FAERS Safety Report 10776599 (Version 1)
Quarter: 2015Q1

REPORT INFORMATION
  Report Type: Spontaneous
  Country: DE (occurrence: DE)
  Receive Date: 20150209
  Receipt Date: 20150209
  Transmission Date: 20150721
  Serious: Yes (Death, Hospitalization)
  Sender: FDA-Public Use
  Company Number: DE-BAXTER-2015BAX005504

PATIENT
  Age: 18 Month
  Sex: Female

DRUGS (8)
  1. AMPHOTERICIN [Suspect]
     Active Substance: AMPHOTERICIN B
     Indication: ANTIFUNGAL PROPHYLAXIS
     Dosage: SUSPENSION
     Route: 065
  2. AMPHOTERICIN [Suspect]
     Active Substance: AMPHOTERICIN B
     Indication: ANTIBIOTIC THERAPY
     Dosage: LIPOSOMAL
     Route: 042
  3. TAZOBACTAM [Suspect]
     Active Substance: TAZOBACTAM
     Indication: ANTIBIOTIC THERAPY
     Route: 065
  4. METRONIDAZOL-INFUSIONSL?SUNG 0,5 % BAXTER [Suspect]
     Active Substance: METRONIDAZOLE
     Indication: ANTIBIOTIC THERAPY
     Route: 042
  5. PIPERACILLIN [Suspect]
     Active Substance: PIPERACILLIN
     Indication: ANTIBIOTIC THERAPY
     Route: 065
  6. PREDNISONE. [Concomitant]
     Active Substance: PREDNISONE
     Indication: PRODUCT USED FOR UNKNOWN INDICATION
     Route: 065
  7. METRONIDAZOL-INFUSIONSL?SUNG 0,5 % BAXTER [Suspect]
     Active Substance: METRONIDAZOLE
     Indication: OFF LABEL USE
  8. AMPHOTERICIN [Suspect]
     Active Substance: AMPHOTERICIN B
     Indication: MUCOSAL INFLAMMATION
     Dosage: LIPOSOMAL
     Route: 042

REACTIONS (2)
  - General physical health deterioration [Fatal]
  - Herpes simplex [Fatal]
